FAERS Safety Report 26020092 (Version 1)
Quarter: 2025Q4

REPORT INFORMATION
  Report Type: Spontaneous
  Country: US (occurrence: None)
  Receive Date: 20251108
  Receipt Date: 20251108
  Transmission Date: 20260118
  Serious: No
  Sender: FDA-CTU
  Company Number: None

PATIENT
  Age: 33 Year
  Sex: Female

DRUGS (1)
  1. XYZAL [Suspect]
     Active Substance: LEVOCETIRIZINE DIHYDROCHLORIDE
     Indication: Seasonal allergy
     Dates: start: 20240515, end: 20241201

REACTIONS (5)
  - Pruritus [None]
  - Anxiety [None]
  - Insomnia [None]
  - Withdrawal syndrome [None]
  - Product label issue [None]

NARRATIVE: CASE EVENT DATE: 20241201
